FAERS Safety Report 7302468-X (Version None)
Quarter: 2011Q1

REPORT INFORMATION
  Report Type: 
  Country: None (occurrence: None)
  Receive Date: 20110218
  Receipt Date: 20110215
  Transmission Date: 20110831
  Serious: Yes (Other)
  Sender: FDA-Public Use
  Company Number: US-PFIZER INC-2010152711

PATIENT
  Sex: Male
  Weight: 72 kg

DRUGS (4)
  1. CHANTIX [Suspect]
     Dosage: 1 MG, 2X/DAY
     Route: 048
     Dates: start: 20090101, end: 20090101
  2. CHANTIX [Suspect]
     Dosage: 1 MG, 2X/DAY
     Dates: start: 20100928, end: 20101001
  3. CHANTIX [Suspect]
     Indication: SMOKING CESSATION THERAPY
     Dosage: 0.5 MG, 1X/DAY
     Route: 050
     Dates: start: 20090101, end: 20090101
  4. CHANTIX [Suspect]
     Dosage: 1 MG, 1X/DAY
     Dates: start: 20090101, end: 20090101

REACTIONS (5)
  - ANGER [None]
  - FEELING ABNORMAL [None]
  - AGITATION [None]
  - MOOD ALTERED [None]
  - IRRITABILITY [None]
